FAERS Safety Report 5660176-5 (Version None)
Quarter: 2008Q1

REPORT INFORMATION
  Report Type: 
  Country: None (occurrence: None)
  Receive Date: 20080212
  Receipt Date: 20070208
  Transmission Date: 20080703
  Serious: Yes (Other)
  Sender: FDA-Public Use
  Company Number: MC200700180

PATIENT
  Age: 83 Year
  Sex: Male

DRUGS (3)
  1. ANGIOMAX [Suspect]
     Indication: PERCUTANEOUS CORONARY INTERVENTION
  2. LOVENOX [Suspect]
     Indication: CHEST PAIN
  3. PLAVIX [Suspect]

REACTIONS (1)
  - HAEMORRHAGIC STROKE [None]
